FAERS Safety Report 4311940-6 (Version None)
Quarter: 2004Q1

REPORT INFORMATION
  Report Type: 
  Country: None (occurrence: None)
  Receive Date: 20040303
  Receipt Date: 20040220
  Transmission Date: 20041129
  Serious: Yes (Life-Threatening)
  Sender: FDA-Public Use
  Company Number: 235457

PATIENT
  Age: 10 Year
  Sex: Female
  Weight: 22.9 kg

DRUGS (2)
  1. NORDITROPIN [Suspect]
     Indication: ILL-DEFINED DISORDER
     Dosage: 0.8 MG, QD, SUBCUTANEOUS
     Route: 058
     Dates: start: 20000204, end: 20040204
  2. ETHOSUXIMIDE [Concomitant]

REACTIONS (3)
  - ATAXIA [None]
  - JUVENILE PILOCYTIC ASTROCYTOMA [None]
  - VISUAL DISTURBANCE [None]
